FAERS Safety Report 8609793-0 (Version None)
Quarter: 2012Q3

REPORT INFORMATION
  Report Type: 
  Country: None (occurrence: None)
  Receive Date: 20120821
  Receipt Date: 20120807
  Transmission Date: 20120928
  Serious: Yes (Other)
  Sender: FDA-Public Use
  Company Number: CHPA2012US018123

PATIENT
  Age: 66 Year
  Sex: Female

DRUGS (2)
  1. EXCEDRIN EXTRA STRENGTH CAPLETS [Suspect]
     Dosage: 2 TO 3 DF AT A TIME, UNK
     Route: 048
  2. EXCEDRIN EXTRA STRENGTH CAPLETS [Suspect]
     Indication: ARTHRALGIA
     Dosage: 2 TO 3 DF AT A TIME, UNK
     Route: 048

REACTIONS (6)
  - HEADACHE [None]
  - INCORRECT DOSE ADMINISTERED [None]
  - CHONDROPATHY [None]
  - DIZZINESS [None]
  - DRY MOUTH [None]
  - ARTHROPATHY [None]
